FAERS Safety Report 7714575-8 (Version None)
Quarter: 2011Q3

REPORT INFORMATION
  Report Type: 
  Country: None (occurrence: None)
  Receive Date: 20110829
  Receipt Date: 20110825
  Transmission Date: 20111222
  Serious: No
  Sender: FDA-Public Use
  Company Number: US-PFIZER INC-2011199220

PATIENT
  Sex: Male

DRUGS (3)
  1. LIPITOR [Suspect]
     Dosage: UNK
     Route: 048
  2. LIPITOR [Suspect]
     Dosage: 10 MG, UNK
     Route: 048
  3. LIPITOR [Suspect]
     Dosage: 5 MG, UNK
     Route: 048

REACTIONS (1)
  - INFLUENZA LIKE ILLNESS [None]
